FAERS Safety Report 8501301-8 (Version None)
Quarter: 2012Q3

REPORT INFORMATION
  Report Type: 
  Country: None (occurrence: None)
  Receive Date: 20120710
  Receipt Date: 20120706
  Transmission Date: 20120928
  Serious: No
  Sender: FDA-Public Use
  Company Number: US-PFIZER INC-2012162424

PATIENT
  Age: 41 Year
  Sex: Male

DRUGS (1)
  1. LYRICA [Suspect]
     Indication: HERPES ZOSTER
     Dosage: 75 4XD

REACTIONS (2)
  - THERAPEUTIC RESPONSE UNEXPECTED [None]
  - DIZZINESS [None]
